FAERS Safety Report 4401862-4 (Version None)
Quarter: 2004Q3

REPORT INFORMATION
  Report Type: 
  Country: None (occurrence: None)
  Receive Date: 20040714
  Receipt Date: 20040628
  Transmission Date: 20050211
  Serious: Yes (Other)
  Sender: FDA-Public Use
  Company Number: US_0404102258

PATIENT
  Sex: Female

DRUGS (3)
  1. HUMULIN N [Suspect]
  2. REGULAR ILETIN II (PORK) [Suspect]
  3. HUMULIN R [Suspect]
     Dates: start: 19890101

REACTIONS (3)
  - CONVULSION [None]
  - HYPOGLYCAEMIA [None]
  - INJECTION SITE RASH [None]
